FAERS Safety Report 17266726 (Version 3)
Quarter: 2020Q2

REPORT INFORMATION
  Report Type: Spontaneous
  Country: PT (occurrence: PT)
  Receive Date: 20200114
  Receipt Date: 20200408
  Transmission Date: 20200713
  Serious: Yes (Life-Threatening, Hospitalization, Other)
  Sender: FDA-Public Use
  Company Number: PT-IPCA LABORATORIES LIMITED-IPC-2020-PT-000098

PATIENT

DRUGS (2)
  1. INSULIN [Concomitant]
     Active Substance: INSULIN NOS
     Indication: TYPE 2 DIABETES MELLITUS
     Dosage: UNK
     Route: 065
  2. METFORMIN [Suspect]
     Active Substance: METFORMIN HYDROCHLORIDE
     Indication: TYPE 2 DIABETES MELLITUS
     Dosage: 1000 MG, UNK
     Route: 048

REACTIONS (8)
  - Renal impairment [Recovered/Resolved]
  - Haemofiltration [Unknown]
  - Nausea [Recovered/Resolved]
  - Dehydration [Unknown]
  - Vomiting [Unknown]
  - Urine output decreased [Recovered/Resolved]
  - Gastroenteritis viral [Unknown]
  - Lactic acidosis [Recovered/Resolved]
